FAERS Safety Report 9492039 (Version 2)
Quarter: 2013Q3

REPORT INFORMATION
  Report Type: Report from Study
  Country: BR (occurrence: BR)
  Receive Date: 20130830
  Receipt Date: 20130830
  Transmission Date: 20140515
  Serious: Yes (Death, Hospitalization, Other)
  Sender: FDA-Public Use
  Company Number: PHHY2013BR051482

PATIENT
  Age: 92 Year
  Sex: Female
  Weight: 40 kg

DRUGS (1)
  1. EXELON PATCH [Suspect]
     Indication: DEMENTIA ALZHEIMER^S TYPE
     Dosage: 9.5 MG, DAILY
     Route: 062
     Dates: start: 201303

REACTIONS (5)
  - Pneumonia [Fatal]
  - Dysphagia [Not Recovered/Not Resolved]
  - Gastrooesophageal reflux disease [Not Recovered/Not Resolved]
  - Pain [Unknown]
  - Weight decreased [Not Recovered/Not Resolved]
